FAERS Safety Report 18781357 (Version 1)
Quarter: 2021Q1

REPORT INFORMATION
  Report Type: Spontaneous
  Country: US (occurrence: US)
  Receive Date: 20210122
  Receipt Date: 20210122
  Transmission Date: 20210419
  Serious: Yes (Hospitalization)
  Sender: FDA-Public Use
  Company Number: None

PATIENT
  Age: 78 Year
  Sex: Female

DRUGS (11)
  1. FUROSEMIDE. [Concomitant]
     Active Substance: FUROSEMIDE
  2. SIMVASTATIN. [Concomitant]
     Active Substance: SIMVASTATIN
  3. PULMICORT TURBUHALER [Concomitant]
     Active Substance: BUDESONIDE
  4. VOLTAREN TOP GEL [Concomitant]
  5. LEVOTHYROXINE. [Concomitant]
     Active Substance: LEVOTHYROXINE
  6. ADEMPAS [Suspect]
     Active Substance: RIOCIGUAT
     Indication: PULMONARY HYPERTENSION
     Route: 048
     Dates: start: 20160913
  7. OXYGEN INTRANASAL [Concomitant]
  8. K?TAB [Concomitant]
     Active Substance: POTASSIUM CHLORIDE
  9. WARFARIN [Concomitant]
     Active Substance: WARFARIN
  10. ALLOPURINOL. [Concomitant]
     Active Substance: ALLOPURINOL
  11. TRIAMCINOLONE TOP OINT [Concomitant]

REACTIONS (1)
  - Shoulder arthroplasty [None]

NARRATIVE: CASE EVENT DATE: 20201222
